FAERS Safety Report 6626045-9 (Version None)
Quarter: 2010Q1

REPORT INFORMATION
  Report Type: 
  Country: None (occurrence: None)
  Receive Date: 20100310
  Receipt Date: 20100301
  Transmission Date: 20100710
  Serious: Yes (Hospitalization)
  Sender: FDA-Public Use
  Company Number: A0742036A

PATIENT
  Age: 45 Year
  Sex: Male
  Weight: 122.7 kg

DRUGS (3)
  1. AVANDARYL [Suspect]
     Route: 048
     Dates: start: 20060731, end: 20061219
  2. AVANDIA [Suspect]
     Route: 048
  3. GLUCOPHAGE [Concomitant]

REACTIONS (4)
  - ACUTE MYOCARDIAL INFARCTION [None]
  - CARDIAC FAILURE CONGESTIVE [None]
  - HEART TRANSPLANT [None]
  - ISCHAEMIC CARDIOMYOPATHY [None]
